FAERS Safety Report 5330555-4 (Version None)
Quarter: 2007Q2

REPORT INFORMATION
  Report Type: 
  Country: None (occurrence: None)
  Receive Date: 20070517
  Receipt Date: 20070507
  Transmission Date: 20071010
  Serious: No
  Sender: FDA-Public Use
  Company Number: ES-GUERBET-20070002

PATIENT
  Age: 51 Year
  Sex: Female

DRUGS (1)
  1. DOTAREM:  06GD061A / MEGLUMINE GADOTERATE [Suspect]
     Indication: NUCLEAR MAGNETIC RESONANCE IMAGING ABDOMINAL
     Dosage: 15 ML MILLILITRE(S), , ?, UNSPECIFIED INTERVAL, INTRAVENOUS
     Route: 042
     Dates: start: 20070507, end: 20070507

REACTIONS (2)
  - RESPIRATORY FAILURE [None]
  - THROAT IRRITATION [None]
